FAERS Safety Report 7664501-5 (Version None)
Quarter: 2011Q3

REPORT INFORMATION
  Report Type: 
  Country: None (occurrence: None)
  Receive Date: 20110806
  Receipt Date: 20110222
  Transmission Date: 20111222
  Serious: No
  Sender: FDA-Public Use
  Company Number: US-ABBOTT-11P-163-0706798-00

PATIENT
  Sex: Female
  Weight: 69.916 kg

DRUGS (3)
  1. ASPIRIN [Concomitant]
     Indication: PRODUCT USED FOR UNKNOWN INDICATION
     Dosage: 81 MG DAILY
  2. NIASPAN [Suspect]
     Indication: LOW DENSITY LIPOPROTEIN INCREASED
     Dosage: AT BEDTIME
     Dates: start: 20110218
  3. UNKNOWN INHALER MEDICATION [Concomitant]
     Indication: ASTHMA
     Route: 055

REACTIONS (3)
  - ERYTHEMA [None]
  - PARAESTHESIA [None]
  - PRURITUS [None]
